FAERS Safety Report 18129603 (Version 1)
Quarter: 2020Q3

REPORT INFORMATION
  Report Type: Spontaneous
  Country: US (occurrence: US)
  Receive Date: 20200810
  Receipt Date: 20200810
  Transmission Date: 20201103
  Serious: Yes (Hospitalization, Disabling)
  Sender: FDA-Public Use
  Company Number: None

PATIENT
  Age: 57 Year
  Sex: Male
  Weight: 78.3 kg

DRUGS (12)
  1. TRAZODONE [Suspect]
     Active Substance: TRAZODONE HYDROCHLORIDE
  2. TRINTELLIX [Concomitant]
     Active Substance: VORTIOXETINE HYDROBROMIDE
  3. LORAZEPAM. [Concomitant]
     Active Substance: LORAZEPAM
  4. MONTELUKAST SOD [Concomitant]
     Active Substance: MONTELUKAST SODIUM
  5. CLONAZEPAM. [Concomitant]
     Active Substance: CLONAZEPAM
  6. METFORMIN HCL [Concomitant]
     Active Substance: METFORMIN HYDROCHLORIDE
  7. ADVIL [Concomitant]
     Active Substance: IBUPROFEN
  8. LORAZEPAM. [Suspect]
     Active Substance: LORAZEPAM
  9. TRINTELLIX [Suspect]
     Active Substance: VORTIOXETINE HYDROBROMIDE
     Route: 048
  10. IPRAT?ALBUT [Concomitant]
  11. WIXELA INHUB [Concomitant]
     Active Substance: FLUTICASONE PROPIONATE\SALMETEROL XINAFOATE
  12. COMBIVENT RESPIMAT [Concomitant]
     Active Substance: ALBUTEROL SULFATE\IPRATROPIUM BROMIDE

REACTIONS (3)
  - Dyskinesia [None]
  - Movement disorder [None]
  - Extrapyramidal disorder [None]

NARRATIVE: CASE EVENT DATE: 20200712
